FAERS Safety Report 5581633-6 (Version None)
Quarter: 2008Q1

REPORT INFORMATION
  Report Type: 
  Country: None (occurrence: None)
  Receive Date: 20080102
  Receipt Date: 20080102
  Transmission Date: 20080703
  Serious: Yes (Life-Threatening, Hospitalization, Other)
  Sender: FDA-Public Use
  Company Number: None

PATIENT
  Age: 60 Year
  Sex: Male
  Weight: 97.5234 kg

DRUGS (1)
  1. LAMISIL [Suspect]
     Indication: ONYCHOMYCOSIS
     Dosage: 90 TABLETS ONCE DAILY PO
     Route: 048
     Dates: start: 20070418, end: 20070720

REACTIONS (13)
  - ABDOMINAL DISTENSION [None]
  - ASTHENIA [None]
  - DIZZINESS [None]
  - DYSPEPSIA [None]
  - ECZEMA ASTEATOTIC [None]
  - FATIGUE [None]
  - MALAISE [None]
  - NAUSEA [None]
  - PAIN [None]
  - PITTING OEDEMA [None]
  - SKIN REACTION [None]
  - SWELLING [None]
  - VASCULITIS [None]
